FAERS Safety Report 6328260 (Version 4)
Quarter: 2014Q4

REPORT INFORMATION
  Report Type: Report from Study
  Country: US (occurrence: US)
  Receive Date: 20070524
  Receipt Date: 20141008
  Transmission Date: 20150529
  Serious: Yes (Hospitalization)
  Sender: FDA-Public Use
  Company Number: 2007BI010704

PATIENT
  Age: 37 Year
  Sex: Female

DRUGS (10)
  1. VITAMIN D [Concomitant]
     Active Substance: CHOLECALCIFEROL
  2. CALCIUM [Concomitant]
     Active Substance: CALCIUM
  3. FLEXERIL [Concomitant]
     Active Substance: CYCLOBENZAPRINE HYDROCHLORIDE
  4. TYLENOL PM [Concomitant]
     Active Substance: ACETAMINOPHEN\DIPHENHYDRAMINE
  5. LIPITOR [Concomitant]
     Active Substance: ATORVASTATIN CALCIUM
     Indication: BLOOD CHOLESTEROL INCREASED
  6. DOXEPIN [Concomitant]
     Active Substance: DOXEPIN
  7. AVONEX [Suspect]
     Active Substance: INTERFERON BETA-1A
     Indication: MULTIPLE SCLEROSIS
     Route: 030
     Dates: start: 20021121, end: 20100905
  8. MOTRIN [Concomitant]
     Active Substance: IBUPROFEN
  9. AVONEX [Suspect]
     Active Substance: INTERFERON BETA-1A
     Indication: MULTIPLE SCLEROSIS
     Route: 030
  10. ZYRTEC [Concomitant]
     Active Substance: CETIRIZINE HYDROCHLORIDE

REACTIONS (15)
  - Burnout syndrome [Unknown]
  - Malaise [Unknown]
  - Irritable bowel syndrome [Unknown]
  - Anxiety [Unknown]
  - Drug dependence [Unknown]
  - Multiple sclerosis [Unknown]
  - Abnormal behaviour [Unknown]
  - Cognitive disorder [Unknown]
  - Supraventricular tachycardia [Not Recovered/Not Resolved]
  - Depressed mood [Unknown]
  - Intervertebral disc degeneration [Recovered/Resolved]
  - Cartilage atrophy [Not Recovered/Not Resolved]
  - Mental impairment [Unknown]
  - Sleep disorder [Unknown]
  - Memory impairment [Unknown]

NARRATIVE: CASE EVENT DATE: 2002
